FAERS Safety Report 20214952 (Version 2)
Quarter: 2022Q4

REPORT INFORMATION
  Report Type: Spontaneous
  Country: DE (occurrence: DE)
  Receive Date: 20211222
  Receipt Date: 20221027
  Transmission Date: 20230112
  Serious: Yes (Hospitalization, Other)
  Sender: FDA-Public Use
  Company Number: DE-ADRED-07322-01

PATIENT
  Age: 64 Year
  Sex: Female
  Weight: 108 kg

DRUGS (6)
  1. ASPIRIN [Suspect]
     Active Substance: ASPIRIN
     Indication: Product used for unknown indication
     Dosage: 100 MILLIGRAM, ONCE A DAY (100 MG, 0-1-0-0, TABLETTEN)
     Route: 048
  2. RAMIPRIL [Suspect]
     Active Substance: RAMIPRIL
     Indication: Product used for unknown indication
     Dosage: 5 MILLIGRAM, ONCE A DAY (5 MG, 0-0-1-0, TABLETTEN)
     Route: 048
  3. HYDROCHLOROTHIAZIDE\RAMIPRIL [Suspect]
     Active Substance: HYDROCHLOROTHIAZIDE\RAMIPRIL
     Indication: Product used for unknown indication
     Dosage: UNK, ONCE A DAY (25|5 MG, 1-0-0-0, TABLETTEN )
     Route: 048
  4. METOPROLOL SUCCINATE [Concomitant]
     Active Substance: METOPROLOL SUCCINATE
     Indication: Product used for unknown indication
     Dosage: 47.5 MILLIGRAM, ONCE A DAY (47.5 MG, 1-0-0-0, RETARD-TABLETTEN )
     Route: 048
  5. LEVOTHYROXINE SODIUM [Concomitant]
     Active Substance: LEVOTHYROXINE SODIUM
     Indication: Product used for unknown indication
     Dosage: 50 MICROGRAM, ONCE A DAY (50 ?G, 1-0-0-0, TABLETTEN)
     Route: 048
  6. CHOLECALCIFEROL [Concomitant]
     Active Substance: CHOLECALCIFEROL
     Indication: Product used for unknown indication
     Dosage: 20000 INTERNATIONAL UNIT (20000 IE, DONNERSTAGS, WEICHKAPSELN)
     Route: 048

REACTIONS (7)
  - Haematochezia [Unknown]
  - Renal failure [Unknown]
  - Rectal haemorrhage [Unknown]
  - Tachycardia [Unknown]
  - Dizziness [Unknown]
  - Pallor [Unknown]
  - Tumour haemorrhage [Unknown]
